FAERS Safety Report 12563727 (Version 2)
Quarter: 2016Q4

REPORT INFORMATION
  Report Type: Spontaneous
  Country: US (occurrence: US)
  Receive Date: 20160716
  Receipt Date: 20161021
  Transmission Date: 20170207
  Serious: Yes (Death, Life-Threatening, Hospitalization, Other)
  Sender: FDA-Public Use
  Company Number: US-BRISTOL-MYERS SQUIBB COMPANY-BMS-2016-057506

PATIENT
  Age: 8 Year
  Sex: Female
  Weight: 27 kg

DRUGS (10)
  1. OPDIVO [Suspect]
     Active Substance: NIVOLUMAB
     Dosage: 81 MG, UNK
     Route: 042
     Dates: start: 20160707
  2. ACETAMINOPHEN. [Concomitant]
     Active Substance: ACETAMINOPHEN
     Indication: PRODUCT USED FOR UNKNOWN INDICATION
     Dosage: UNK UNK, PRN
     Route: 065
     Dates: end: 20160708
  3. FUROSEMIDE. [Concomitant]
     Active Substance: FUROSEMIDE
     Indication: PROPHYLAXIS
     Dosage: UNK
     Route: 065
     Dates: start: 20160623
  4. NASONEX [Concomitant]
     Active Substance: MOMETASONE FUROATE
     Indication: PNEUMONIA
     Dosage: UNK ABSENT, UNK
     Route: 065
     Dates: end: 20160708
  5. OPDIVO [Suspect]
     Active Substance: NIVOLUMAB
     Indication: GLIOBLASTOMA MULTIFORME
     Dosage: 76 MG, Q2WK
     Route: 042
     Dates: start: 20160602
  6. OPDIVO [Suspect]
     Active Substance: NIVOLUMAB
     Dosage: 80 MG, UNK
     Route: 042
     Dates: start: 20160621
  7. AVASTIN                            /00848101/ [Concomitant]
     Active Substance: SIMVASTATIN
     Indication: CHEMOTHERAPY
     Dosage: UNK
     Route: 065
     Dates: start: 20151028, end: 20160621
  8. AMPICILLIN W/SULBACTAM             /00892601/ [Concomitant]
     Active Substance: AMPICILLIN SODIUM\SULBACTAM SODIUM
     Indication: PNEUMONIA
     Dosage: UNK
     Route: 065
     Dates: start: 20160614, end: 20160617
  9. BEVACIZUMAB [Concomitant]
     Active Substance: BEVACIZUMAB
     Indication: CHEMOTHERAPY
     Dosage: UNK
     Route: 065
     Dates: start: 20160621
  10. IBUPROFEN. [Concomitant]
     Active Substance: IBUPROFEN
     Indication: PRODUCT USED FOR UNKNOWN INDICATION
     Dosage: UNK UNK, PRN
     Route: 065
     Dates: start: 20160708

REACTIONS (10)
  - Hypertension [Not Recovered/Not Resolved]
  - Pneumonia [Fatal]
  - Mechanical ventilation [Unknown]
  - Tracheostomy [Unknown]
  - Neurofibromatosis [Unknown]
  - Product use issue [Unknown]
  - Malignant neoplasm progression [Fatal]
  - Respiratory distress [Unknown]
  - Hydrocephalus [Unknown]
  - Seizure [Fatal]

NARRATIVE: CASE EVENT DATE: 20160602
